FAERS Safety Report 14163191 (Version 1)
Quarter: 2017Q4

REPORT INFORMATION
  Report Type: Spontaneous
  Country: US (occurrence: US)
  Receive Date: 20171106
  Receipt Date: 20171106
  Transmission Date: 20180321
  Serious: Yes (Other)
  Sender: FDA-Public Use
  Company Number: US-PFIZER INC-2017358811

PATIENT
  Age: 57 Year
  Sex: Female
  Weight: 74.84 kg

DRUGS (12)
  1. ALPRAZOLAM. [Suspect]
     Active Substance: ALPRAZOLAM
     Indication: PANIC ATTACK
     Dosage: UNK, (2 A DAY)
  2. ALPRAZOLAM. [Suspect]
     Active Substance: ALPRAZOLAM
     Indication: ANXIETY
     Dosage: 2MG, TABLET, TAKE 4 TABLETS EVERY DAY
     Route: 048
     Dates: start: 20170815
  3. BUPROPION. [Concomitant]
     Active Substance: BUPROPION
     Indication: ANXIETY
     Dosage: UNK, AS NEEDED  (TWICE A DAY)
  4. PROPRANOLOL [Concomitant]
     Active Substance: PROPRANOLOL HYDROCHLORIDE
     Dosage: UNK UNK, AS NEEDED
  5. TRAMADOL. [Concomitant]
     Active Substance: TRAMADOL
     Indication: INTERVERTEBRAL DISC PROTRUSION
     Dosage: 50 MG, UNK, (UP TO 6 A DAY)
  6. BUPROPION. [Concomitant]
     Active Substance: BUPROPION
     Indication: PANIC ATTACK
     Dosage: 200 MG, 1X/DAY
  7. METFORMIN [Concomitant]
     Active Substance: METFORMIN HYDROCHLORIDE
     Dosage: UNK
  8. INDERAL [Concomitant]
     Active Substance: PROPRANOLOL HYDROCHLORIDE
     Dosage: UNK
  9. ALPRAZOLAM. [Suspect]
     Active Substance: ALPRAZOLAM
     Indication: ANXIETY
     Dosage: 2 MG, UNK, (3-4 A DAY)
     Route: 048
     Dates: start: 1986
  10. ALPRAZOLAM. [Suspect]
     Active Substance: ALPRAZOLAM
     Indication: STRESS
  11. AMBIEN [Concomitant]
     Active Substance: ZOLPIDEM TARTRATE
     Indication: INSOMNIA
  12. TRAMADOL. [Concomitant]
     Active Substance: TRAMADOL
     Indication: FALL
     Dosage: 50 MG, (3-4 PILLS A DAY)

REACTIONS (6)
  - Insomnia [Unknown]
  - Confusional state [Unknown]
  - Dysstasia [Unknown]
  - Drug dispensing error [Not Recovered/Not Resolved]
  - Fall [Unknown]
  - Fatigue [Unknown]

NARRATIVE: CASE EVENT DATE: 20170815
